FAERS Safety Report 23843109 (Version 1)
Quarter: 2024Q2

REPORT INFORMATION
  Report Type: Spontaneous
  Country: US (occurrence: None)
  Receive Date: 20240509
  Receipt Date: 20240509
  Transmission Date: 20240715
  Serious: Yes (unspecified)
  Sender: FDA-Public Use
  Company Number: None

PATIENT
  Age: 5 Month
  Sex: Male
  Weight: 4.4 kg

DRUGS (1)
  1. ENOXAPARIN SODIUM [Suspect]
     Active Substance: ENOXAPARIN SODIUM
     Indication: Embolism venous
     Dosage: FREQUENCY : TWICE A DAY;?
     Route: 058
     Dates: start: 20240214, end: 20240506

REACTIONS (6)
  - Injection site bruising [None]
  - Injection site pain [None]
  - Injection site swelling [None]
  - Injection site irritation [None]
  - Haematoma [None]
  - Compartment syndrome [None]

NARRATIVE: CASE EVENT DATE: 20240506
